FAERS Safety Report 6686932-2 (Version None)
Quarter: 2010Q2

REPORT INFORMATION
  Report Type: 
  Country: None (occurrence: None)
  Receive Date: 20100416
  Receipt Date: 20100416
  Transmission Date: 20101027
  Serious: Yes (Other)
  Sender: FDA-Public Use
  Company Number: None

PATIENT
  Sex: Female
  Weight: 48.9885 kg

DRUGS (2)
  1. RECLAST [Suspect]
     Indication: OSTEOPOROSIS
     Dosage: (1YR INFUSION)
     Dates: start: 20080301
  2. RECLAST [Suspect]
     Indication: OSTEOPOROSIS
     Dosage: (1YR INFUSION)
     Dates: start: 20090501

REACTIONS (10)
  - ABNORMAL FAECES [None]
  - ASTHENIA [None]
  - BLINDNESS [None]
  - BONE DISORDER [None]
  - BURNING SENSATION [None]
  - DIARRHOEA [None]
  - INSOMNIA [None]
  - MUSCLE SPASMS [None]
  - NAUSEA [None]
  - URINE ODOUR ABNORMAL [None]
